FAERS Safety Report 23751628 (Version 1)
Quarter: 2024Q2

REPORT INFORMATION
  Report Type: Spontaneous
  Country: US (occurrence: None)
  Receive Date: 20240416
  Receipt Date: 20240416
  Transmission Date: 20240716
  Serious: No
  Sender: FDA-Public Use
  Company Number: None

PATIENT
  Age: 36 Year
  Sex: Female
  Weight: 73.8 kg

DRUGS (1)
  1. XCOPRI [Suspect]
     Active Substance: CENOBAMATE
     Indication: Epilepsy
     Dosage: OTHER QUANTITY : 1 TABLET(S);?FREQUENCY : AT BEDTIME;?
     Route: 048

REACTIONS (4)
  - Hypersensitivity [None]
  - Skin abrasion [None]
  - Application site swelling [None]
  - Weight increased [None]

NARRATIVE: CASE EVENT DATE: 20230707
